FAERS Safety Report 5307733-3 (Version None)
Quarter: 2007Q2

REPORT INFORMATION
  Report Type: 
  Country: None (occurrence: None)
  Receive Date: 20070418
  Receipt Date: 20070411
  Transmission Date: 20071010
  Serious: No
  Sender: FDA-Public Use
  Company Number: TAP2007Q00488

PATIENT
  Age: 9 Year
  Sex: Male
  Weight: 24.54 kg

DRUGS (4)
  1. PREVACID [Suspect]
     Indication: STOMACH DISCOMFORT
     Dosage: 15 MG, 1 IN 1 D, PER ORAL
     Route: 048
     Dates: start: 20070402, end: 20070408
  2. PREVACID [Suspect]
     Indication: VOMITING
     Dosage: 15 MG, 1 IN 1 D, PER ORAL
     Route: 048
     Dates: start: 20070402, end: 20070408
  3. LUMINAL (PHENOBARBITAL) [Suspect]
     Indication: CONVULSION
     Dosage: 45 MG, 2 IN 1 D, PER ORAL
     Route: 048
     Dates: start: 19990101
  4. DIASTAT [Concomitant]

REACTIONS (3)
  - CONDITION AGGRAVATED [None]
  - CONVULSION [None]
  - DRUG INTERACTION INHIBITION [None]
